FAERS Safety Report 16964312 (Version 1)
Quarter: 2019Q4

REPORT INFORMATION
  Report Type: Spontaneous
  Country: US (occurrence: US)
  Receive Date: 20190909
  Receipt Date: 20190909
  Transmission Date: 20200122
  Serious: Yes (Hospitalization)
  Sender: FDA-Public Use
  Company Number: None

PATIENT
  Age: 76 Year
  Sex: Male

DRUGS (1)
  1. VITAMIN D3 [Suspect]
     Active Substance: CHOLECALCIFEROL
     Route: 048

REACTIONS (17)
  - Troponin I increased [None]
  - Hypophagia [None]
  - Gastric ulcer [None]
  - Accidental overdose [None]
  - Knee arthroplasty [None]
  - Dysstasia [None]
  - Depressed level of consciousness [None]
  - Supraventricular extrasystoles [None]
  - Mental status changes [None]
  - Incorrect dose administered [None]
  - Blood pressure systolic decreased [None]
  - Lethargy [None]
  - Confusional state [None]
  - Duodenal ulcer [None]
  - Cardiac hypertrophy [None]
  - Asthenia [None]
  - Hypersomnia [None]
